FAERS Safety Report 10041496 (Version 4)
Quarter: 2014Q2

REPORT INFORMATION
  Report Type: Report from Study
  Country: AT (occurrence: AT)
  Receive Date: 20140327
  Receipt Date: 20140520
  Transmission Date: 20141212
  Serious: Yes (Other)
  Sender: FDA-Public Use
  Company Number: AT-US-EMD SERONO, INC.-7277251

PATIENT
  Age: 23 Year
  Sex: Male
  Weight: 80 kg

DRUGS (1)
  1. REBIF [Suspect]
     Indication: MULTIPLE SCLEROSIS
     Route: 058
     Dates: start: 201312, end: 20140317

REACTIONS (4)
  - Angina pectoris [Recovered/Resolved]
  - Palpitations [Recovered/Resolved]
  - Skin swelling [Recovered/Resolved]
  - Lung disorder [Unknown]
